FAERS Safety Report 17426911 (Version 1)
Quarter: 2020Q1

REPORT INFORMATION
  Report Type: Other
  Country: FR (occurrence: FR)
  Receive Date: 20200218
  Receipt Date: 20200218
  Transmission Date: 20200409
  Serious: Yes (Hospitalization)
  Sender: FDA-Public Use
  Company Number: FR-ORCHID HEALTHCARE-2080573

PATIENT
  Age: 52 Year
  Sex: Female

DRUGS (3)
  1. METHYLPHENIDATE. [Interacting]
     Active Substance: METHYLPHENIDATE
     Route: 065
     Dates: start: 201505
  2. VENLAFAXINE HYDROCHLORIDE. [Suspect]
     Active Substance: VENLAFAXINE HYDROCHLORIDE
     Route: 065
     Dates: start: 201505
  3. PITOLISANT [Interacting]
     Active Substance: PITOLISANT
     Route: 065
     Dates: start: 201709

REACTIONS (2)
  - Drug interaction [Unknown]
  - Splenic infarction [Unknown]
